FAERS Safety Report 24104190 (Version 1)
Quarter: 2024Q3

REPORT INFORMATION
  Report Type: Spontaneous
  Country: CN (occurrence: None)
  Receive Date: 20240717
  Receipt Date: 20240717
  Transmission Date: 20241016
  Serious: Yes (Other)
  Sender: ASTRAZENECA
  Company Number: 2024A156836

PATIENT
  Age: 52 Year
  Sex: Female

DRUGS (5)
  1. OSIMERTINIB [Suspect]
     Active Substance: OSIMERTINIB
     Indication: Lung adenocarcinoma
     Route: 048
  2. CARBOPLATIN [Concomitant]
     Active Substance: CARBOPLATIN
  3. BEVACIZUMAB [Concomitant]
     Active Substance: BEVACIZUMAB
  4. PACLITAXEL [Concomitant]
     Active Substance: PACLITAXEL
  5. CISPLATIN [Concomitant]
     Active Substance: CISPLATIN

REACTIONS (2)
  - Malignant neoplasm progression [Unknown]
  - Metastases to breast [Unknown]

NARRATIVE: CASE EVENT DATE: 20220701
